FAERS Safety Report 17409362 (Version 1)
Quarter: 2020Q1

REPORT INFORMATION
  Report Type: Spontaneous
  Country: US (occurrence: US)
  Receive Date: 20200212
  Receipt Date: 20200212
  Transmission Date: 20200409
  Serious: Yes (Other)
  Sender: FDA-Public Use
  Company Number: US-PFIZER INC-2020062425

PATIENT
  Age: 70 Year

DRUGS (1)
  1. CHANTIX [Suspect]
     Active Substance: VARENICLINE TARTRATE
     Indication: SMOKING CESSATION THERAPY
     Dosage: UNK

REACTIONS (5)
  - Anxiety [Unknown]
  - Seizure [Unknown]
  - Lung carcinoma cell type unspecified stage IV [Recovering/Resolving]
  - Pain [Unknown]
  - Panic attack [Unknown]
